FAERS Safety Report 22315874 (Version 1)
Quarter: 2023Q2

REPORT INFORMATION
  Report Type: Spontaneous
  Country: US (occurrence: None)
  Receive Date: 20230512
  Receipt Date: 20230512
  Transmission Date: 20230721
  Serious: Yes (Other)
  Sender: FDA-Public Use
  Company Number: US-ROCHE-3346742

PATIENT
  Age: 44 Year
  Sex: Female
  Weight: 66.5 kg

DRUGS (18)
  1. AUBAGIO [Suspect]
     Active Substance: TERIFLUNOMIDE
     Indication: Multiple sclerosis
     Dosage: ON 22/AUG/2023, DOSAGE WAS CHANGED TO 7 MG
     Route: 048
  2. OCREVUS [Suspect]
     Active Substance: OCRELIZUMAB
     Indication: Product used for unknown indication
     Route: 065
  3. KESIMPTA [Concomitant]
     Active Substance: OFATUMUMAB
  4. ACYCLOVIR [Concomitant]
     Active Substance: ACYCLOVIR
  5. SUMATRIPTAN [Concomitant]
     Active Substance: SUMATRIPTAN
  6. TOLTERODINE TARTRATE [Concomitant]
     Active Substance: TOLTERODINE TARTRATE
  7. VITAMIN D3 [Concomitant]
     Active Substance: CHOLECALCIFEROL
  8. ALOE VERA LEAF [Concomitant]
     Active Substance: ALOE VERA LEAF
  9. TRAZODONE HYDROCHLORIDE [Concomitant]
     Active Substance: TRAZODONE HYDROCHLORIDE
     Indication: Muscle spasms
  10. ZONISAMIDE [Concomitant]
     Active Substance: ZONISAMIDE
  11. DULOXETINE HYDROCHLORIDE [Concomitant]
     Active Substance: DULOXETINE HYDROCHLORIDE
  12. INTERFERON BETA-1B [Concomitant]
     Active Substance: INTERFERON BETA-1B
  13. GLATIRAMER ACETATE [Concomitant]
     Active Substance: GLATIRAMER ACETATE
  14. VALTREX [Concomitant]
     Active Substance: VALACYCLOVIR HYDROCHLORIDE
     Indication: Oral herpes
  15. ESGIC [Concomitant]
     Active Substance: ACETAMINOPHEN\BUTALBITAL\CAFFEINE
     Indication: Headache
  16. LEVOTHYROXINE SODIUM [Concomitant]
     Active Substance: LEVOTHYROXINE SODIUM
  17. TRAZODONE [Concomitant]
     Active Substance: TRAZODONE HYDROCHLORIDE
     Indication: Sleep disorder
  18. MOMETASONE FUROATE [Concomitant]
     Active Substance: MOMETASONE FUROATE

REACTIONS (5)
  - Multiple sclerosis [Unknown]
  - Pharyngeal swelling [Unknown]
  - Throat irritation [Unknown]
  - Oropharyngeal pain [Unknown]
  - Headache [Unknown]
